FAERS Safety Report 6241873-X (Version None)
Quarter: 2009Q2

REPORT INFORMATION
  Report Type: 
  Country: None (occurrence: None)
  Receive Date: 20090623
  Receipt Date: 20090611
  Transmission Date: 20091009
  Serious: Yes (Other)
  Sender: FDA-Public Use
  Company Number: JP-PFIZER INC-2009217906

PATIENT
  Age: 60 Year

DRUGS (11)
  1. ZYVOX [Suspect]
     Indication: STAPHYLOCOCCAL INFECTION
     Dosage: 600 MG, 2X/DAY
     Route: 048
     Dates: start: 20070821, end: 20070903
  2. ZYVOX [Suspect]
     Dosage: 600 MG, 2X/DAY
     Dates: start: 20071029, end: 20071105
  3. ZYVOX [Suspect]
     Dosage: 600 MG, 2X/DAY
     Dates: start: 20071129, end: 20071219
  4. ZYVOX [Suspect]
     Dosage: 600 MG, 2X/DAY
     Dates: start: 20090327, end: 20090403
  5. PRORENAL [Concomitant]
     Route: 048
  6. BIOFERMIN [Concomitant]
     Route: 048
  7. TRYPTANOL [Concomitant]
     Route: 048
  8. VOLTAREN [Concomitant]
  9. PELEX [Concomitant]
     Route: 048
  10. CRAVIT [Concomitant]
     Dates: start: 20071120
  11. OXYBUPROCAINE HYDROCHLORIDE [Concomitant]
     Dates: start: 20071120

REACTIONS (2)
  - IRIDOCYCLITIS [None]
  - KERATITIS [None]
